FAERS Safety Report 7815695-X (Version None)
Quarter: 2011Q4

REPORT INFORMATION
  Report Type: 
  Country: None (occurrence: None)
  Receive Date: 20111014
  Receipt Date: 20110930
  Transmission Date: 20120403
  Serious: Yes (Hospitalization, Other)
  Sender: FDA-Public Use
  Company Number: PHHY2011US43312

PATIENT
  Age: 35 Year
  Sex: Female

DRUGS (2)
  1. CYCLOSPORINE [Suspect]
     Indication: RENAL TRANSPLANT
     Dosage: 100 MG, BID
  2. PREDNISONE [Suspect]
     Dosage: UNK UKN, UNK

REACTIONS (14)
  - SECRETION DISCHARGE [None]
  - ANAEMIA [None]
  - SUPERINFECTION BACTERIAL [None]
  - ULCER [None]
  - ARTHROPOD BITE [None]
  - DERMATITIS [None]
  - B-CELL LYMPHOMA [None]
  - NEOPLASM MALIGNANT [None]
  - FUSARIUM INFECTION [None]
  - SKIN PLAQUE [None]
  - T-CELL LYMPHOMA [None]
  - RENAL FAILURE CHRONIC [None]
  - NECROSIS [None]
  - THROMBOSIS [None]
